FAERS Safety Report 9304345 (Version 1)
Quarter: 2013Q2

REPORT INFORMATION
  Report Type: Report from Study
  Country: IT (occurrence: TZ)
  Receive Date: 20130522
  Receipt Date: 20130522
  Transmission Date: 20140414
  Serious: Yes (Death)
  Sender: FDA-Public Use
  Company Number: TZ-B.I. PHARMACEUTICALS,INC./RIDGEFIELD-2013-BI-14047GD

PATIENT
  Sex: 0

DRUGS (3)
  1. VIRAMUNE [Suspect]
     Indication: EXPOSURE DURING PREGNANCY
     Route: 064
  2. 3TC [Suspect]
     Indication: EXPOSURE DURING PREGNANCY
     Route: 064
  3. ANTIVIRALS FOR TREATMENT OF HIV INFECTIONS, C [Suspect]
     Indication: EXPOSURE DURING PREGNANCY
     Route: 064

REACTIONS (3)
  - Neonatal asphyxia [Fatal]
  - Death neonatal [None]
  - Maternal drugs affecting foetus [None]
